FAERS Safety Report 7795381-5 (Version None)
Quarter: 2011Q4

REPORT INFORMATION
  Report Type: 
  Country: None (occurrence: None)
  Receive Date: 20111004
  Receipt Date: 20110923
  Transmission Date: 20120403
  Serious: Yes (Hospitalization)
  Sender: FDA-Public Use
  Company Number: NL-JNJFOC-20110208298

PATIENT
  Age: 29 Year
  Sex: Female
  Weight: 68 kg

DRUGS (17)
  1. FENTANYL [Concomitant]
     Indication: ABDOMINAL PAIN
     Dates: start: 20100901, end: 20101101
  2. METHADONE HCL [Concomitant]
     Indication: PROCEDURAL PAIN
     Dates: start: 20101022, end: 20101024
  3. ACETAMINOPHEN [Concomitant]
     Dates: start: 20101001, end: 20101001
  4. REMICADE [Suspect]
     Indication: COLITIS ULCERATIVE
     Route: 042
     Dates: start: 20090824
  5. NADROPARIN [Concomitant]
     Indication: PROPHYLAXIS
     Dosage: 2850 IE ONCE
     Dates: start: 20100927, end: 20101101
  6. OXYCODON [Concomitant]
     Dates: start: 20101014, end: 20101026
  7. REMICADE [Suspect]
     Route: 042
     Dates: start: 20090907
  8. ACETAMINOPHEN [Concomitant]
     Indication: ABDOMINAL PAIN
     Dates: start: 20100901, end: 20101101
  9. MESALAMINE [Concomitant]
     Indication: COLITIS ULCERATIVE
     Dates: start: 20101008, end: 20101012
  10. REMICADE [Suspect]
     Route: 042
     Dates: start: 20091005, end: 20091005
  11. ACETAMINOPHEN [Concomitant]
     Indication: HEADACHE
     Dates: start: 20101001, end: 20101001
  12. MESALAMINE [Concomitant]
     Dates: start: 20101015, end: 20101021
  13. OXYCODON [Concomitant]
     Dates: start: 20101007, end: 20101013
  14. ACETAMINOPHEN [Concomitant]
     Dates: start: 20100901, end: 20101101
  15. TRAMADOL HCL [Concomitant]
     Indication: ABDOMINAL PAIN
     Dates: start: 20100901, end: 20101001
  16. PANTOPRAZOLE [Concomitant]
  17. NUVARING [Concomitant]

REACTIONS (7)
  - COLECTOMY [None]
  - PROCTOCOLECTOMY [None]
  - COLITIS ULCERATIVE [None]
  - COLOSTOMY [None]
  - HOSPITALISATION [None]
  - ILEUS [None]
  - ANORECTAL OPERATION [None]
